FAERS Safety Report 12890677 (Version 2)
Quarter: 2020Q3

REPORT INFORMATION
  Report Type: Spontaneous
  Country: US (occurrence: US)
  Receive Date: 20161027
  Receipt Date: 20200921
  Transmission Date: 20201102
  Serious: No
  Sender: FDA-Public Use
  Company Number: US-JAZZ-2016-US-015931

PATIENT
  Age: 29 Year
  Sex: Female

DRUGS (20)
  1. SUDAFED [Concomitant]
     Active Substance: PSEUDOEPHEDRINE HYDROCHLORIDE
  2. ZANTAC [Concomitant]
     Active Substance: RANITIDINE HYDROCHLORIDE
  3. XYREM [Suspect]
     Active Substance: SODIUM OXYBATE
     Indication: CATAPLEXY
     Dosage: DOSE ADJUSTMENTS
     Route: 048
     Dates: start: 201607, end: 201608
  4. CONCERTA [Concomitant]
     Active Substance: METHYLPHENIDATE HYDROCHLORIDE
  5. ERYTHROMYCIN. [Concomitant]
     Active Substance: ERYTHROMYCIN
  6. CHOLESTYRAMINE. [Concomitant]
     Active Substance: CHOLESTYRAMINE
  7. KELNOR 1/35 [Concomitant]
     Active Substance: ETHINYL ESTRADIOL\ETHYNODIOL DIACETATE
  8. XYREM [Suspect]
     Active Substance: SODIUM OXYBATE
     Dosage: 4.5 G, BID
     Route: 048
     Dates: start: 201608
  9. DULERA [Concomitant]
     Active Substance: FORMOTEROL FUMARATE DIHYDRATE\MOMETASONE FUROATE
  10. XYREM [Suspect]
     Active Substance: SODIUM OXYBATE
     Indication: NARCOLEPSY
     Dosage: 2.25 G, BID
     Route: 048
     Dates: start: 201607, end: 201607
  11. ALBUTEROL HFA [Concomitant]
     Active Substance: ALBUTEROL SULFATE
  12. ADVIL [IBUPROFEN] [Concomitant]
     Active Substance: IBUPROFEN
  13. CLARITIN [Concomitant]
     Active Substance: LORATADINE
  14. NASACORT [Concomitant]
     Active Substance: TRIAMCINOLONE ACETONIDE
  15. XYLITOL [Concomitant]
     Active Substance: XYLITOL
  16. XYZAL [Concomitant]
     Active Substance: LEVOCETIRIZINE DIHYDROCHLORIDE
  17. CHLORPHENIRAMINE [CHLORPHENAMINE] [Concomitant]
     Active Substance: CHLORPHENIRAMINE
  18. CYCLOBENZAPRINE. [Concomitant]
     Active Substance: CYCLOBENZAPRINE
  19. SINGULAIR [Concomitant]
     Active Substance: MONTELUKAST SODIUM
  20. TYLENOL EXTRA STRENGTH [Concomitant]
     Active Substance: ACETAMINOPHEN

REACTIONS (4)
  - Insomnia [Unknown]
  - Fatigue [Unknown]
  - Thirst [Not Recovered/Not Resolved]
  - Polydipsia [Unknown]

NARRATIVE: CASE EVENT DATE: 2016
